FAERS Safety Report 9135395 (Version 1)
Quarter: 2013Q1

REPORT INFORMATION
  Report Type: Spontaneous
  Country: US (occurrence: US)
  Receive Date: 20130304
  Receipt Date: 20130304
  Transmission Date: 20140127
  Serious: No
  Sender: FDA-Public Use
  Company Number: US-ENDO PHARMACEUTICALS INC.-ENDC20110198

PATIENT
  Sex: Male

DRUGS (3)
  1. ENDOCET [Suspect]
     Indication: ARTHRALGIA
     Dosage: 80MG/2600MG
     Route: 048
  2. ENDOCET [Suspect]
     Indication: PAIN IN EXTREMITY
  3. NEURONTIN [Suspect]
     Indication: PRODUCT USED FOR UNKNOWN INDICATION
     Dosage: UNK
     Route: 048
     Dates: start: 201106, end: 201107

REACTIONS (1)
  - Sleep terror [Recovered/Resolved]
